FAERS Safety Report 11076289 (Version 1)
Quarter: 2015Q2

REPORT INFORMATION
  Report Type: Spontaneous
  Country: US (occurrence: US)
  Receive Date: 20150429
  Receipt Date: 20150429
  Transmission Date: 20150821
  Serious: Yes (Other)
  Sender: FDA-Public Use
  Company Number: US-TEVA-558247USA

PATIENT
  Sex: Female

DRUGS (1)
  1. COPAXONE [Suspect]
     Active Substance: GLATIRAMER ACETATE
     Indication: MULTIPLE SCLEROSIS
     Dates: start: 20140808

REACTIONS (7)
  - Erythema [Unknown]
  - Throat tightness [Unknown]
  - Weight increased [Unknown]
  - Sinusitis [Unknown]
  - Flushing [Unknown]
  - Cardiac flutter [Unknown]
  - Arthralgia [Unknown]
